FAERS Safety Report 5468631-8 (Version None)
Quarter: 2007Q3

REPORT INFORMATION
  Report Type: 
  Country: None (occurrence: None)
  Receive Date: 20070926
  Receipt Date: 20070918
  Transmission Date: 20080115
  Serious: Yes (Death)
  Sender: FDA-Public Use
  Company Number: US-JNJFOC-20070903814

PATIENT
  Sex: Female

DRUGS (10)
  1. FENTANYL TRANSDERMAL SYSTEM [Suspect]
     Indication: PAIN
     Route: 062
  2. PRILOSEC [Concomitant]
     Route: 048
  3. PREDNISONE [Concomitant]
     Route: 048
  4. POTASSIUM CHLORIDE [Concomitant]
     Route: 048
  5. FOLIC ACID [Concomitant]
     Route: 048
  6. DEXAMETHASONE 0.5MG TAB [Concomitant]
     Route: 048
  7. ROXICODONE [Concomitant]
     Route: 048
  8. DOXYCYCLINE [Concomitant]
     Route: 048
  9. MUCINEX DM [Concomitant]
     Route: 048
  10. XOPENEX [Concomitant]
     Route: 055

REACTIONS (1)
  - NEOPLASM MALIGNANT [None]
